FAERS Safety Report 6474432-4 (Version None)
Quarter: 2009Q4

REPORT INFORMATION
  Report Type: 
  Country: None (occurrence: None)
  Receive Date: 20091204
  Receipt Date: 20091130
  Transmission Date: 20100525
  Serious: Yes (Other)
  Sender: FDA-Public Use
  Company Number: US-ELI_LILLY_AND_COMPANY-US200911007309

PATIENT
  Age: 53 Year
  Sex: Female

DRUGS (3)
  1. BYETTA [Suspect]
     Indication: TYPE 2 DIABETES MELLITUS
     Dates: end: 20090101
  2. AMARYL [Concomitant]
     Indication: TYPE 2 DIABETES MELLITUS
  3. GLUCOPHAGE [Concomitant]
     Indication: TYPE 2 DIABETES MELLITUS

REACTIONS (3)
  - BREAST PAIN [None]
  - CHEST PAIN [None]
  - PANCREATITIS [None]
